FAERS Safety Report 18925950 (Version 1)
Quarter: 2021Q1

REPORT INFORMATION
  Report Type: Spontaneous
  Country: FR (occurrence: FR)
  Receive Date: 20210223
  Receipt Date: 20210223
  Transmission Date: 20210420
  Serious: Yes (Other)
  Sender: FDA-Public Use
  Company Number: FR-CELLTRION INC.-2021FR001969

PATIENT

DRUGS (1)
  1. INFLIXIMAB (UNKNOWN) [Suspect]
     Active Substance: INFLIXIMAB
     Indication: CROHN^S DISEASE
     Dosage: 10 MG/KG, EVERY 6 WEEKS
     Route: 065

REACTIONS (4)
  - Overdose [Unknown]
  - Chronic recurrent multifocal osteomyelitis [Recovering/Resolving]
  - Psoriasis [Recovered/Resolved]
  - Product use issue [Unknown]
